FAERS Safety Report 20122243 (Version 2)
Quarter: 2021Q4

REPORT INFORMATION
  Report Type: Report from Study
  Country: JP (occurrence: JP)
  Receive Date: 20211128
  Receipt Date: 20211203
  Transmission Date: 20220303
  Serious: Yes (Hospitalization, Other)
  Sender: FDA-Public Use
  Company Number: JP-ARDELYX-2021ARDX000151

PATIENT

DRUGS (18)
  1. TENAPANOR [Suspect]
     Active Substance: TENAPANOR
     Indication: Hyperphosphataemia
     Dosage: 5 MILLIGRAM, BID IMMEDIATELY BEFORE MEAL
     Route: 048
     Dates: start: 20210607, end: 20210919
  2. TENAPANOR [Suspect]
     Active Substance: TENAPANOR
     Dosage: 10 MILLIGRAM, BID IMMEDIATELY BEFORE MEAL
     Route: 048
     Dates: start: 20210920
  3. CALCIUM POLYSTYRENE SULFONATE [Suspect]
     Active Substance: CALCIUM POLYSTYRENE SULFONATE
     Indication: Hyperkalaemia
     Dosage: WHEN K VALUE WAS HIGH, PRN
     Route: 048
     Dates: start: 20161128, end: 20200719
  4. CALCIUM POLYSTYRENE SULFONATE [Suspect]
     Active Substance: CALCIUM POLYSTYRENE SULFONATE
     Dosage: 1 DOSAGE FORM, QD
     Route: 048
     Dates: start: 20200720, end: 20201227
  5. CALCIUM POLYSTYRENE SULFONATE [Suspect]
     Active Substance: CALCIUM POLYSTYRENE SULFONATE
     Dosage: 1 DOSAGE FORM, BID
     Route: 048
     Dates: start: 20201228, end: 20210608
  6. CALCIUM POLYSTYRENE SULFONATE [Suspect]
     Active Substance: CALCIUM POLYSTYRENE SULFONATE
     Dosage: 1 DOSAGE FORM, QD
     Route: 048
     Dates: start: 20210609, end: 20210624
  7. CALCIUM POLYSTYRENE SULFONATE [Suspect]
     Active Substance: CALCIUM POLYSTYRENE SULFONATE
     Dosage: 1 DOSAGE FORM, BID
     Route: 048
     Dates: start: 20210625
  8. CALCIUM CARBONATE [Concomitant]
     Active Substance: CALCIUM CARBONATE
     Indication: Product used for unknown indication
     Dosage: UNK
     Route: 065
     Dates: start: 20210712
  9. RENAGEL [SEVELAMER CARBONATE] [Concomitant]
     Indication: Product used for unknown indication
     Dosage: UNK
     Route: 065
     Dates: start: 20211004
  10. LOPERAMIDE HYDROCHLORIDE [Concomitant]
     Active Substance: LOPERAMIDE HYDROCHLORIDE
     Indication: Product used for unknown indication
     Dosage: UNK
     Route: 065
     Dates: start: 20210705
  11. DARBEPOETIN ALFA [Concomitant]
     Active Substance: DARBEPOETIN ALFA
     Indication: Product used for unknown indication
     Dosage: UNK
     Route: 065
     Dates: start: 20210818
  12. FEBUXOSTAT [Concomitant]
     Active Substance: FEBUXOSTAT
     Indication: Product used for unknown indication
     Dosage: UNK
     Route: 065
  13. REMITCH OD [Concomitant]
     Indication: Product used for unknown indication
     Dosage: UNK
     Route: 065
  14. RINDERON VG [Concomitant]
     Active Substance: BETAMETHASONE VALERATE\GENTAMICIN SULFATE
     Indication: Product used for unknown indication
     Dosage: UNK
     Route: 065
  15. SAHNE [Concomitant]
     Indication: Product used for unknown indication
     Dosage: UNK
     Route: 065
  16. LOXOPROFEN SODIUM [Concomitant]
     Active Substance: LOXOPROFEN SODIUM
     Indication: Product used for unknown indication
     Dosage: UNK
     Route: 065
  17. SENNOSIDE A [Concomitant]
     Active Substance: SENNOSIDE A
     Indication: Product used for unknown indication
     Dosage: UNK
     Route: 065
  18. CILOSTAZOL [Concomitant]
     Active Substance: CILOSTAZOL
     Indication: Product used for unknown indication
     Dosage: UNK
     Route: 065
     Dates: start: 20210903

REACTIONS (1)
  - Diverticular perforation [Recovered/Resolved]

NARRATIVE: CASE EVENT DATE: 20211101
